FAERS Safety Report 10035249 (Version 1)
Quarter: 2014Q1

REPORT INFORMATION
  Report Type: Spontaneous
  Country: US (occurrence: None)
  Receive Date: 20140306
  Receipt Date: 20140306
  Transmission Date: 20141002
  Serious: Yes (Other)
  Sender: FDA-Public Use
  Company Number: 163-21880-13122739

PATIENT
  Age: 63 Year
  Sex: Female
  Weight: 145 kg

DRUGS (7)
  1. REVLIMID [Suspect]
     Indication: PLASMA CELL MYELOMA
     Route: 048
     Dates: start: 201110
  2. AREDIA (PAMIDRONATE DISODIUM) (UNKNOWN) [Concomitant]
  3. EXFORGE (AMLODIPINE W/VALSARTAN) (TABLETS) [Concomitant]
  4. ENALAPRIL MALEATE (ENALAPRIL MALEATE) (TABLETS) (ENALAPRIL MALEATE) [Concomitant]
  5. ASPIRINE (ACETYLSALICYLIC ACID) (TABLETS) [Concomitant]
  6. TRIAMTERENE/HCTZ (DYAZIDE) (UNKNOWN) [Concomitant]
  7. METOPROLOL SUCCINATE (METOPROLOL SUCCINATE) (TABLETS) [Concomitant]

REACTIONS (2)
  - Sluggishness [None]
  - Haemoglobin decreased [None]
